FAERS Safety Report 6188123-0 (Version None)
Quarter: 2009Q2

REPORT INFORMATION
  Report Type: 
  Country: None (occurrence: None)
  Receive Date: 20090513
  Receipt Date: 20090501
  Transmission Date: 20091009
  Serious: Yes (Death)
  Sender: FDA-Public Use
  Company Number: US-BAYER-200919934GPV

PATIENT
  Age: 75 Year

DRUGS (4)
  1. IOPROMIDE [Suspect]
     Indication: ARTERIOGRAM CORONARY
     Dosage: AS USED: 380 ML
     Route: 013
  2. SODIUM CHLORIDE [Concomitant]
     Indication: PROPHYLAXIS
  3. ANGIOTENSIN-CONVERTING ENZYME INHIBITOR [Concomitant]
     Indication: DRUG USE FOR UNKNOWN INDICATION
  4. ANGIOTENSIN II RECEPTOR BLOCKERS [Concomitant]
     Indication: DRUG USE FOR UNKNOWN INDICATION

REACTIONS (1)
  - RENAL FAILURE ACUTE [None]
